FAERS Safety Report 22012147 (Version 1)
Quarter: 2023Q1

REPORT INFORMATION
  Report Type: Spontaneous
  Country: GB (occurrence: GB)
  Receive Date: 20230220
  Receipt Date: 20230220
  Transmission Date: 20230417
  Serious: Yes (Hospitalization, Other)
  Sender: FDA-Public Use
  Company Number: GB-CELGENE-GBR-20211107738

PATIENT
  Age: 53 Year
  Sex: Female
  Weight: 78 kg

DRUGS (49)
  1. CYCLOPHOSPHAMIDE [Suspect]
     Active Substance: CYCLOPHOSPHAMIDE
     Indication: Plasma cell myeloma
     Dosage: UNK
     Route: 065
  2. BORTEZOMIB [Suspect]
     Active Substance: BORTEZOMIB
     Indication: Plasma cell myeloma
     Dosage: 2.25 MG, DOSAGE FORM: INJECTION
     Route: 058
     Dates: start: 20210611, end: 20210621
  3. BORTEZOMIB [Suspect]
     Active Substance: BORTEZOMIB
     Dosage: UNK
     Route: 065
  4. DEXAMETHASONE [Suspect]
     Active Substance: DEXAMETHASONE
     Indication: Plasma cell myeloma
     Dosage: 20 MG, QD
     Route: 048
     Dates: start: 20210624
  5. DEXAMETHASONE [Suspect]
     Active Substance: DEXAMETHASONE
     Dosage: 20 MG, QD
     Route: 048
     Dates: start: 20210611, end: 20210612
  6. POMALYST [Suspect]
     Active Substance: POMALIDOMIDE
     Indication: Plasma cell myeloma
     Dosage: 4 MG, QD
     Route: 048
     Dates: start: 20210611, end: 20210624
  7. POMALIDOMIDE [Suspect]
     Active Substance: POMALIDOMIDE
     Indication: Plasma cell myeloma
     Dosage: 4 MG
     Route: 048
     Dates: start: 20210611, end: 20210613
  8. ACYCLOVIR [Concomitant]
     Active Substance: ACYCLOVIR
     Indication: Antiviral prophylaxis
     Dosage: 400 MG, BID (800 MILLIGRAM)
     Route: 048
  9. ACYCLOVIR [Concomitant]
     Active Substance: ACYCLOVIR
     Indication: Peripheral sensory neuropathy
     Dosage: 20 MG, QD (800 MILLIGRAM)
     Route: 048
     Dates: start: 20210414, end: 20211103
  10. AMITRIPTYLINE [Concomitant]
     Active Substance: AMITRIPTYLINE
     Indication: Peripheral sensory neuropathy
     Dosage: 20 MG, QD
     Route: 048
     Dates: start: 20210414, end: 20211103
  11. CARBOMER [Concomitant]
     Active Substance: CARBOMER
     Indication: Dry eye
     Dosage: 1 GTT, AS REQUIRED
     Route: 047
     Dates: start: 20171030, end: 20210613
  12. COTRIMOXAZOLE [Concomitant]
     Active Substance: SULFAMETHOXAZOLE\TRIMETHOPRIM
     Indication: Antifungal prophylaxis
     Dosage: UNK
     Route: 048
     Dates: start: 20210630, end: 20210726
  13. COTRIMOXAZOLE [Concomitant]
     Active Substance: SULFAMETHOXAZOLE\TRIMETHOPRIM
     Dosage: UNK UNK, WEEKLY (800/160MG)
     Route: 048
     Dates: end: 20210630
  14. DALTEPARIN [Concomitant]
     Active Substance: DALTEPARIN
     Indication: Thrombosis prophylaxis
     Dosage: FORM STRENGTH : 5000,  QD
     Route: 058
     Dates: end: 20210612
  15. BUDESONIDE\FORMOTEROL [Concomitant]
     Active Substance: BUDESONIDE\FORMOTEROL
     Indication: Asthma prophylaxis
     Dosage: 10 MG, QD
     Route: 065
     Dates: start: 20210524
  16. BUDESONIDE\FORMOTEROL [Concomitant]
     Active Substance: BUDESONIDE\FORMOTEROL
     Dosage: 10 MG, BID (160/4.5) (2 DOSAGE FORMS, 1 IN 0.5 D)
     Route: 055
     Dates: start: 20150911
  17. FEXOFENADINE [Concomitant]
     Active Substance: FEXOFENADINE HYDROCHLORIDE
     Indication: Prophylaxis
     Dosage: 180 MG, QD
     Route: 048
     Dates: start: 20050901
  18. FLUCONAZOLE [Concomitant]
     Active Substance: FLUCONAZOLE
     Indication: Antifungal prophylaxis
     Dosage: 100 MG, QD
     Route: 048
     Dates: start: 20210613
  19. FLUCONAZOLE [Concomitant]
     Active Substance: FLUCONAZOLE
     Dosage: 100 MG, QD
     Route: 048
     Dates: start: 20210101
  20. FLUDARABINE [Concomitant]
     Active Substance: FLUDARABINE PHOSPHATE
     Indication: Plasma cell myeloma
     Dosage: UNK
     Route: 065
  21. FUROSEMIDE [Concomitant]
     Active Substance: FUROSEMIDE
     Indication: Diuretic therapy
     Dosage: AS REQUIRED
     Route: 048
     Dates: start: 20210426, end: 20210613
  22. GABAPENTIN [Concomitant]
     Active Substance: GABAPENTIN
     Indication: Peripheral sensory neuropathy
     Dosage: 300 MG, TID (900 MILLIGRAM 3 IN 1 DAY)
     Route: 048
     Dates: start: 20210507, end: 20210817
  23. GABAPENTIN [Concomitant]
     Active Substance: GABAPENTIN
     Dosage: 600 MG, QD
     Route: 048
  24. GABAPENTIN [Concomitant]
     Active Substance: GABAPENTIN
     Dosage: UNK
     Route: 048
  25. GABAPENTIN [Concomitant]
     Active Substance: GABAPENTIN
     Dosage: 300 MG, BID (600 MILLIGRAM)
     Route: 048
     Dates: end: 20210729
  26. GABAPENTIN [Concomitant]
     Active Substance: GABAPENTIN
     Dosage: 300 MG (900 MG, 3 IN 1 DAY)
     Route: 048
     Dates: start: 20210507, end: 20210817
  27. POLYETHYLENE GLYCOL 3350\POTASSIUM CHLORIDE\SODIUM BICARBONATE\SODIUM [Concomitant]
     Active Substance: POLYETHYLENE GLYCOL 3350\POTASSIUM CHLORIDE\SODIUM BICARBONATE\SODIUM CHLORIDE
     Indication: Constipation prophylaxis
     Dosage: UNK
     Route: 048
     Dates: start: 20210426, end: 20210701
  28. MONTELUKAST [Concomitant]
     Active Substance: MONTELUKAST SODIUM
     Indication: Asthma prophylaxis
     Dosage: 10 MG, QD
     Route: 048
     Dates: start: 20210524
  29. MORPHINE SULFATE [Concomitant]
     Active Substance: MORPHINE SULFATE
     Indication: Back pain
     Dosage: 7.5 MG, BID (15 MILLIGRAM)
     Route: 048
     Dates: end: 20210613
  30. MORPHINE SULFATE [Concomitant]
     Active Substance: MORPHINE SULFATE
     Indication: Musculoskeletal chest pain
     Dosage: 60 MG, BID (120 MILLIGRAM)
     Route: 048
     Dates: start: 20210604, end: 20210626
  31. MORPHINE SULFATE [Concomitant]
     Active Substance: MORPHINE SULFATE
     Dosage: 10 MG, PRN (AS REQUIRED)
     Route: 048
     Dates: start: 20210614, end: 20210616
  32. MORPHINE SULFATE [Concomitant]
     Active Substance: MORPHINE SULFATE
     Dosage: 60 MG, BID,
     Route: 048
     Dates: start: 20210629, end: 20210630
  33. MORPHINE SULFATE [Concomitant]
     Active Substance: MORPHINE SULFATE
     Dosage: 50 MG, ONCE IN 0.5 DAY
     Route: 048
     Dates: start: 20210613, end: 20210613
  34. MORPHINE SULFATE [Concomitant]
     Active Substance: MORPHINE SULFATE
     Dosage: 60 MG, BID
     Route: 048
     Dates: start: 20210604, end: 20210606
  35. NITROFURANTOIN [Concomitant]
     Active Substance: NITROFURANTOIN
     Indication: Urinary tract infection
     Dosage: 100 MG, BID (200 MILLIGRAM)
     Route: 048
     Dates: start: 20210706, end: 20210708
  36. NITROFURANTOIN [Concomitant]
     Active Substance: NITROFURANTOIN
     Dosage: 100 MG, BID.
     Route: 065
     Dates: start: 20210609, end: 20210615
  37. OMEPRAZOLE [Concomitant]
     Active Substance: OMEPRAZOLE
     Indication: Hiatus hernia
     Dosage: 20 MG, QD
     Route: 048
     Dates: start: 20100820
  38. ONDANSETRON [Concomitant]
     Active Substance: ONDANSETRON
     Indication: Antiemetic supportive care
     Dosage: 4 MG, BID (8 MILLIGRAM)
     Route: 048
     Dates: start: 20210701, end: 20210725
  39. ONDANSETRON [Concomitant]
     Active Substance: ONDANSETRON
     Dosage: 4 MG,
     Route: 048
     Dates: start: 20210701, end: 20210812
  40. MORPHINE SULFATE [Concomitant]
     Active Substance: MORPHINE SULFATE
     Indication: Back pain
     Dosage: 60 MG
     Route: 065
     Dates: start: 20210604, end: 20210626
  41. MORPHINE SULFATE [Concomitant]
     Active Substance: MORPHINE SULFATE
     Dosage: 7.5 MG, BID (15 MILLIGRAM)
     Route: 048
     Dates: end: 20210613
  42. ACETAMINOPHEN [Concomitant]
     Active Substance: ACETAMINOPHEN
     Indication: Back pain
     Dosage: 1GM AS REQUIRED QID (4 GRAM)
     Route: 048
     Dates: start: 20140324
  43. ACETAMINOPHEN [Concomitant]
     Active Substance: ACETAMINOPHEN
     Dosage: 1GM AS REQUIRED QID (4 GRAM)
     Route: 048
     Dates: start: 20210626
  44. ALBUTEROL [Concomitant]
     Active Substance: ALBUTEROL
     Indication: Asthma prophylaxis
     Dosage: 100 MCG,1 IN 1 AS REQUIRED
     Route: 055
  45. SENNA [Concomitant]
     Active Substance: SENNA LEAF\SENNOSIDES\SENNOSIDES A AND B
     Indication: Constipation
     Dosage: 15 MG, 1 IN 1 AS REQUIRED
     Route: 048
     Dates: end: 20210613
  46. CLODRONIC ACID [Concomitant]
     Active Substance: CLODRONIC ACID
     Indication: Prophylaxis
     Dosage: 800 MG, BID (1600 MILLIGRAM)
     Route: 048
     Dates: start: 20210426, end: 20210614
  47. BUDESONIDE\FORMOTEROL FUMARATE [Concomitant]
     Active Substance: BUDESONIDE\FORMOTEROL FUMARATE
     Indication: Asthma prophylaxis
     Dosage: (160/4.5) (2 DOSAGE FORMS, 1 IN 0.5 DAY)
     Route: 055
     Dates: start: 20150911
  48. BUDESONIDE\FORMOTEROL FUMARATE [Concomitant]
     Active Substance: BUDESONIDE\FORMOTEROL FUMARATE
     Dosage: 10 MG, QD
     Route: 065
     Dates: start: 20210524
  49. BUDESONIDE\FORMOTEROL FUMARATE [Concomitant]
     Active Substance: BUDESONIDE\FORMOTEROL FUMARATE
     Dosage: 2 DOSAGE FORM, BID
     Route: 055
     Dates: start: 20150911

REACTIONS (2)
  - Lower respiratory tract infection [Recovered/Resolved]
  - Pneumonia [Recovered/Resolved]

NARRATIVE: CASE EVENT DATE: 20210613
